FAERS Safety Report 14849572 (Version 1)
Quarter: 2018Q2

REPORT INFORMATION
  Report Type: Report from Study
  Country: AR (occurrence: AR)
  Receive Date: 20180504
  Receipt Date: 20180504
  Transmission Date: 20180711
  Serious: Yes (Death, Hospitalization)
  Sender: FDA-Public Use
  Company Number: PHHY2018AR001876

PATIENT
  Sex: Male

DRUGS (1)
  1. ENTRESTO [Suspect]
     Active Substance: SACUBITRIL\VALSARTAN
     Indication: CARDIAC FAILURE
     Dosage: 50 MG, QD
     Route: 065
     Dates: start: 201711

REACTIONS (5)
  - Renal failure [Fatal]
  - Cardiac disorder [Unknown]
  - Prescribed underdose [Unknown]
  - Neoplasm malignant [Fatal]
  - Drug prescribing error [Unknown]
